FAERS Safety Report 8787300 (Version 1)
Quarter: 2012Q4

REPORT INFORMATION
  Report Type: Report from Study
  Country: US (occurrence: US)
  Receive Date: 20120914
  Receipt Date: 20120914
  Transmission Date: 20130627
  Serious: No
  Sender: FDA-Public Use
  Company Number: US-VERTEX PHARMACEUTICAL INC.-AE-2012-009668

PATIENT

DRUGS (6)
  1. INCIVEK [Suspect]
     Indication: HEPATITIS C
     Route: 048
     Dates: start: 20120611
  2. PEGASYS [Concomitant]
     Indication: HEPATITIS C
     Route: 058
     Dates: start: 20120611
  3. RIBASPHERE [Concomitant]
     Indication: HEPATITIS C
     Route: 048
     Dates: start: 20120611
  4. SYNTHROID [Concomitant]
     Route: 048
  5. LEXAPRO [Concomitant]
  6. BENICAR HCT [Concomitant]
     Route: 048

REACTIONS (6)
  - Headache [Unknown]
  - Dry skin [Unknown]
  - Fatigue [Unknown]
  - Rash pruritic [Unknown]
  - Erythema [Unknown]
  - Anorectal discomfort [Unknown]
